FAERS Safety Report 13245773 (Version 1)
Quarter: 2017Q1

REPORT INFORMATION
  Report Type: Spontaneous
  Country: FR (occurrence: FR)
  Receive Date: 20170217
  Receipt Date: 20170217
  Transmission Date: 20170428
  Serious: Yes (Other)
  Sender: FDA-Public Use
  Company Number: FR-ORION CORPORATION ORION PHARMA-TREX2017-0526

PATIENT
  Age: 79 Year
  Sex: Female

DRUGS (1)
  1. IMETH [Suspect]
     Active Substance: METHOTREXATE SODIUM
     Indication: RHEUMATOID ARTHRITIS
     Dosage: STRENGTH: 10 MG
     Route: 048
     Dates: start: 20170111

REACTIONS (9)
  - Tremor [Unknown]
  - Headache [Unknown]
  - Eye pain [Unknown]
  - Dysphemia [Unknown]
  - Confusional state [Recovered/Resolved]
  - Speech disorder [Recovered/Resolved]
  - Tachycardia [Unknown]
  - Visual impairment [Recovered/Resolved]
  - Chills [Unknown]

NARRATIVE: CASE EVENT DATE: 20170111
